FAERS Safety Report 16633391 (Version 1)
Quarter: 2019Q3

REPORT INFORMATION
  Report Type: Spontaneous
  Country: US (occurrence: US)
  Receive Date: 20190725
  Receipt Date: 20190725
  Transmission Date: 20191004
  Serious: Yes (Other)
  Sender: FDA-Public Use
  Company Number: US-JNJFOC-20190722518

PATIENT
  Sex: Female
  Weight: 105.33 kg

DRUGS (3)
  1. REMICADE [Suspect]
     Active Substance: INFLIXIMAB
     Indication: CROHN^S DISEASE
     Route: 042
     Dates: start: 201506, end: 201510
  2. REMICADE [Suspect]
     Active Substance: INFLIXIMAB
     Route: 042
  3. SYNTHROID [Concomitant]
     Active Substance: LEVOTHYROXINE SODIUM

REACTIONS (4)
  - Hepatic cirrhosis [Recovered/Resolved]
  - Hepatic failure [Recovered/Resolved]
  - Autoimmune hepatitis [Recovered/Resolved]
  - Foot deformity [Unknown]

NARRATIVE: CASE EVENT DATE: 2015
